FAERS Safety Report 5628691-8 (Version None)
Quarter: 2008Q1

REPORT INFORMATION
  Report Type: 
  Country: None (occurrence: None)
  Receive Date: 20080215
  Receipt Date: 20080206
  Transmission Date: 20080703
  Serious: Yes (Other)
  Sender: FDA-Public Use
  Company Number: US-PFIZER INC-2008011891

PATIENT
  Sex: Female
  Weight: 56.363 kg

DRUGS (4)
  1. AMLODIPINE [Suspect]
     Indication: HYPERTENSION
     Dates: start: 20080109, end: 20080101
  2. LEVOXYL [Concomitant]
  3. METOPROLOL TARTRATE [Concomitant]
  4. DIOVAN [Concomitant]

REACTIONS (5)
  - BLOOD PRESSURE INADEQUATELY CONTROLLED [None]
  - INSOMNIA [None]
  - MOOD ALTERED [None]
  - PRURITUS GENERALISED [None]
  - SUICIDAL IDEATION [None]
